FAERS Safety Report 14568996 (Version 1)
Quarter: 2018Q1

REPORT INFORMATION
  Report Type: Spontaneous
  Country: JP (occurrence: JP)
  Receive Date: 20180223
  Receipt Date: 20180223
  Transmission Date: 20180509
  Serious: Yes (Other)
  Sender: FDA-Public Use
  Company Number: JP-PFIZER INC-2018066299

PATIENT
  Age: 90 Year

DRUGS (1)
  1. LEVOFLOXACIN. [Suspect]
     Active Substance: LEVOFLOXACIN
     Dosage: UNK, ONCE DAILY
     Route: 048
     Dates: start: 201802

REACTIONS (3)
  - Proteinuria [Unknown]
  - Drug ineffective [Unknown]
  - Hallucination [Unknown]
